FAERS Safety Report 9909210 (Version 7)
Quarter: 2015Q1

REPORT INFORMATION
  Report Type: Report from Study
  Country: US (occurrence: US)
  Receive Date: 20140219
  Receipt Date: 20150213
  Transmission Date: 20150721
  Serious: Yes (Hospitalization)
  Sender: FDA-Public Use
  Company Number: US-ACTELION-A-US2014-94804

PATIENT
  Age: 57 Year
  Sex: Female

DRUGS (7)
  1. REVATIO [Concomitant]
     Active Substance: SILDENAFIL CITRATE
  2. SILDENAFIL. [Concomitant]
     Active Substance: SILDENAFIL
  3. LASIX [Concomitant]
     Active Substance: FUROSEMIDE
  4. METOLAZONE. [Concomitant]
     Active Substance: METOLAZONE
  5. MACITENTAN [Suspect]
     Active Substance: MACITENTAN
     Indication: PORTAL HYPERTENSION
     Dosage: 10 MG, QD
     Route: 048
     Dates: start: 201312
  6. SPIRONOLACTONE. [Concomitant]
     Active Substance: SPIRONOLACTONE
  7. TYVASO [Concomitant]
     Active Substance: TREPROSTINIL

REACTIONS (12)
  - Ammonia increased [Recovered/Resolved]
  - Ascites [Unknown]
  - Laboratory test [Unknown]
  - Peripheral swelling [Unknown]
  - Pneumonia [Unknown]
  - Gastrointestinal obstruction [Recovering/Resolving]
  - Nausea [Recovered/Resolved]
  - Fluid retention [Unknown]
  - Vomiting [Recovered/Resolved]
  - Oropharyngeal pain [Unknown]
  - Malaise [Unknown]
  - Blood potassium decreased [Recovering/Resolving]

NARRATIVE: CASE EVENT DATE: 20140206
